FAERS Safety Report 5447412-5 (Version None)
Quarter: 2007Q3

REPORT INFORMATION
  Report Type: 
  Country: None (occurrence: None)
  Receive Date: 20070910
  Receipt Date: 20070906
  Transmission Date: 20080115
  Serious: Yes (Other)
  Sender: FDA-Public Use
  Company Number: AT-AMGEN-UK222006

PATIENT
  Sex: Male

DRUGS (5)
  1. KINERET [Suspect]
     Indication: PRE-EXISTING DISEASE
     Route: 058
     Dates: start: 20050101
  2. METHOTREXATE [Concomitant]
     Route: 048
  3. FOLIC ACID [Concomitant]
     Route: 048
  4. PREDNISOLONE [Concomitant]
     Route: 048
  5. ACTONEL [Concomitant]
     Route: 048

REACTIONS (3)
  - DIZZINESS [None]
  - NON-NEUTRALISING ANTIBODIES POSITIVE [None]
  - THERAPEUTIC RESPONSE DECREASED [None]
